FAERS Safety Report 6467479-5 (Version None)
Quarter: 2009Q4

REPORT INFORMATION
  Report Type: 
  Country: None (occurrence: None)
  Receive Date: 20091130
  Receipt Date: 20091111
  Transmission Date: 20100525
  Serious: No
  Sender: FDA-Public Use
  Company Number: C-09-0242-W

PATIENT
  Age: 27 Year
  Sex: Male
  Weight: 66.67 kg

DRUGS (1)
  1. RANITIDINE HCL [Suspect]
     Indication: DYSPEPSIA
     Dosage: 150MG BID 047
     Dates: start: 20090405

REACTIONS (1)
  - DRUG SCREEN POSITIVE [None]
